FAERS Safety Report 6922533-6 (Version None)
Quarter: 2010Q3

REPORT INFORMATION
  Report Type: 
  Country: None (occurrence: None)
  Receive Date: 20100813
  Receipt Date: 20100805
  Transmission Date: 20110219
  Serious: Yes (Other)
  Sender: FDA-Public Use
  Company Number: US-MYLANLABS-2010S1014201

PATIENT
  Age: 34 Year
  Sex: Female

DRUGS (2)
  1. AMNESTEEM [Suspect]
     Indication: ACNE
     Route: 048
     Dates: start: 20100401, end: 20100717
  2. AMNESTEEM [Suspect]
     Route: 048
     Dates: start: 20100520, end: 20100717

REACTIONS (2)
  - DEPRESSION [None]
  - SUICIDAL IDEATION [None]
